FAERS Safety Report 13718861 (Version 1)
Quarter: 2017Q3

REPORT INFORMATION
  Report Type: Spontaneous
  Country: US (occurrence: US)
  Receive Date: 20170705
  Receipt Date: 20170705
  Transmission Date: 20171127
  Serious: No
  Sender: FDA-Public Use
  Company Number: US-JNJFOC-20070703877

PATIENT
  Sex: Male

DRUGS (1)
  1. FENTANYL TRANSDERMAL SYSTEM [Suspect]
     Active Substance: FENTANYL
     Indication: ACCIDENTAL EXPOSURE TO PRODUCT
     Route: 062

REACTIONS (2)
  - Accidental exposure to product [Recovered/Resolved]
  - Device leakage [Unknown]

NARRATIVE: CASE EVENT DATE: 20070618
